FAERS Safety Report 8602053-3 (Version None)
Quarter: 2012Q3

REPORT INFORMATION
  Report Type: 
  Country: None (occurrence: None)
  Receive Date: 20120817
  Receipt Date: 20120807
  Transmission Date: 20120928
  Serious: Yes (Hospitalization)
  Sender: FDA-Public Use
  Company Number: DE-JNJFOC-20120804884

PATIENT
  Age: 56 Year
  Sex: Male

DRUGS (2)
  1. AZATHIOPRINE SODIUM [Concomitant]
     Indication: MUSCULOSKELETAL PAIN
  2. INFLIXIMAB, RECOMBINANT [Suspect]
     Indication: RHEUMATOID ARTHRITIS
     Route: 042
     Dates: start: 20101101

REACTIONS (1)
  - PARATHYROIDECTOMY [None]
